FAERS Safety Report 5668191-2 (Version None)
Quarter: 2008Q1

REPORT INFORMATION
  Report Type: 
  Country: None (occurrence: None)
  Receive Date: 20080313
  Receipt Date: 20080303
  Transmission Date: 20080703
  Serious: Yes (Other)
  Sender: FDA-Public Use
  Company Number: 2008005358

PATIENT
  Age: 62 Year
  Sex: Male

DRUGS (1)
  1. COOL MINT LISTERINE (MENTHOL, METHYL SALICYLATE, EUCALYPTOL, THYMOL) [Suspect]
     Dosage: ORAL
     Route: 048
     Dates: start: 20080302, end: 20080302

REACTIONS (3)
  - ACCIDENTAL EXPOSURE [None]
  - CHEST PAIN [None]
  - DRUG HYPERSENSITIVITY [None]
